FAERS Safety Report 15321504 (Version 1)
Quarter: 2018Q3

REPORT INFORMATION
  Report Type: Spontaneous
  Country: US (occurrence: US)
  Receive Date: 20180821
  Receipt Date: 20180821
  Transmission Date: 20181010
  Serious: Yes (Hospitalization)
  Sender: FDA-Public Use
  Company Number: None

PATIENT
  Age: 73 Year
  Sex: Male
  Weight: 109.13 kg

DRUGS (2)
  1. BUPROPION. [Suspect]
     Active Substance: BUPROPION
     Indication: DEPRESSION
     Route: 048
     Dates: start: 20171019, end: 20180525
  2. TRAMADOL. [Suspect]
     Active Substance: TRAMADOL
     Dates: start: 20180522, end: 20180607

REACTIONS (1)
  - Seizure [None]

NARRATIVE: CASE EVENT DATE: 20180524
